FAERS Safety Report 5927570-6 (Version None)
Quarter: 2008Q4

REPORT INFORMATION
  Report Type: 
  Country: None (occurrence: None)
  Receive Date: 20081023
  Receipt Date: 20081014
  Transmission Date: 20090506
  Serious: Yes (Other)
  Sender: FDA-Public Use
  Company Number: US-JNJFOC-20080803769

PATIENT
  Sex: Male
  Weight: 108.86 kg

DRUGS (12)
  1. REMICADE [Suspect]
     Route: 042
  2. REMICADE [Suspect]
     Route: 042
  3. REMICADE [Suspect]
     Indication: PSORIATIC ARTHROPATHY
     Route: 042
  4. PREDNISONE TAB [Concomitant]
  5. PREDNISONE TAB [Concomitant]
     Indication: PREMEDICATION
  6. PREDNISONE TAB [Concomitant]
     Indication: PSORIATIC ARTHROPATHY
  7. ULTRAM [Concomitant]
     Indication: PAIN
  8. PROTONIX [Concomitant]
  9. PLAQUENIL [Concomitant]
  10. NEURONTIN [Concomitant]
  11. TYLENOL ES [Concomitant]
     Indication: PREMEDICATION
  12. CLARITIN [Concomitant]
     Indication: PREMEDICATION

REACTIONS (7)
  - CHILLS [None]
  - HEADACHE [None]
  - HYPOTENSION [None]
  - INFUSION RELATED REACTION [None]
  - NAUSEA [None]
  - TESTIS CANCER [None]
  - VOMITING [None]
